FAERS Safety Report 11898703 (Version 3)
Quarter: 2016Q1

REPORT INFORMATION
  Report Type: Spontaneous
  Country: JP (occurrence: JP)
  Receive Date: 20160108
  Receipt Date: 20160301
  Transmission Date: 20160526
  Serious: Yes (Death, Hospitalization, Other)
  Sender: FDA-Public Use
  Company Number: JP-GLAXOSMITHKLINE-JP2016JPN000202

PATIENT
  Age: 47 Year
  Sex: Male
  Weight: 72 kg

DRUGS (42)
  1. DEPAKENE [Suspect]
     Active Substance: VALPROIC ACID
     Dosage: 800 MG, QD
     Route: 048
     Dates: start: 20150915, end: 20151026
  2. PREDONINE [Suspect]
     Active Substance: PREDNISOLONE\PREDNISOLONE ACETATE\PREDNISOLONE SODIUM SUCCINATE
     Dosage: 70 MG, QD
     Dates: start: 20151029, end: 20151101
  3. MYSER OINTMENT [Suspect]
     Active Substance: DIFLUPREDNATE
     Dosage: UNK, BID
     Route: 061
     Dates: start: 20151026
  4. SENNARIDE [Concomitant]
     Active Substance: SENNOSIDES A AND B
     Dosage: 24 MG, QD
     Dates: start: 20150804, end: 20150804
  5. DIAZEPAM. [Concomitant]
     Active Substance: DIAZEPAM
     Dosage: 5 MG, BID
     Dates: start: 20150913, end: 20150913
  6. DIAZEPAM. [Concomitant]
     Active Substance: DIAZEPAM
     Dosage: 5 MG, 6D
     Dates: start: 20150914, end: 20150914
  7. FOSPHENYTOIN [Concomitant]
     Active Substance: FOSPHENYTOIN\FOSPHENYTOIN SODIUM
     Dosage: 375 MG, QD
     Dates: start: 20150914, end: 20150915
  8. PREDONINE [Suspect]
     Active Substance: PREDNISOLONE\PREDNISOLONE ACETATE\PREDNISOLONE SODIUM SUCCINATE
     Dosage: 60 MG, QD
     Dates: start: 20151115, end: 20151115
  9. ZOLPIDEM TARTRATE. [Concomitant]
     Active Substance: ZOLPIDEM TARTRATE
     Dosage: 10 MG, QD
     Dates: start: 20151027, end: 20151027
  10. DIAZEPAM. [Concomitant]
     Active Substance: DIAZEPAM
     Dosage: 5 MG, QD
     Dates: start: 20151031, end: 20151031
  11. DIAZEPAM. [Concomitant]
     Active Substance: DIAZEPAM
     Dosage: 5 MG, QD
     Dates: start: 20151113, end: 20151114
  12. HYALEIN [Concomitant]
     Active Substance: HYALURONATE SODIUM
     Dosage: UNK, BID
     Dates: start: 20151009
  13. SOLU-MEDROL [Suspect]
     Active Substance: METHYLPREDNISOLONE SODIUM SUCCINATE
     Dosage: 1000 MG, QD
     Route: 041
     Dates: start: 20151026, end: 20151028
  14. FOSPHENYTOIN [Concomitant]
     Active Substance: FOSPHENYTOIN\FOSPHENYTOIN SODIUM
     Dosage: 750 MG, QD
     Dates: start: 20150913, end: 20150913
  15. PL [Concomitant]
     Active Substance: ACETAMINOPHEN\CAFFEINE\PROMETHAZINE\SALICYLAMIDE
     Dosage: 1 G, TID
     Dates: start: 20151009
  16. ESTAZOLAM. [Suspect]
     Active Substance: ESTAZOLAM
     Indication: EPILEPSY
     Dosage: 1 MG, QD
     Route: 048
     Dates: start: 20150916, end: 20151026
  17. ANTEBATE OINTMENT [Suspect]
     Active Substance: BETAMETHASONE BUTYRATE PROPIONATE
     Dosage: UNK, BID
     Route: 061
     Dates: start: 20151016
  18. E KEPPRA TABLETS [Concomitant]
     Dosage: 500 MG, BID
     Dates: start: 20150729
  19. SENNARIDE [Concomitant]
     Active Substance: SENNOSIDES A AND B
     Dosage: 24 MG, QD
     Dates: start: 20150918, end: 20150920
  20. SENNARIDE [Concomitant]
     Active Substance: SENNOSIDES A AND B
     Dosage: 24 MG, QD
     Dates: start: 20150928, end: 20150928
  21. NOBELBAR [Concomitant]
     Active Substance: PHENOBARBITAL SODIUM
     Dosage: 250 MG, QD
     Dates: start: 20150915, end: 20150915
  22. ALEVIATIN [Concomitant]
     Active Substance: PHENYTOIN SODIUM
     Dosage: 250 MG, QD
     Dates: start: 20150729, end: 20150802
  23. ZOLPIDEM TARTRATE. [Concomitant]
     Active Substance: ZOLPIDEM TARTRATE
     Dosage: 5 MG, QD
     Dates: start: 20151030, end: 20151101
  24. DIAZEPAM. [Concomitant]
     Active Substance: DIAZEPAM
     Dosage: 5 MG, QID
     Dates: start: 20150915, end: 20150915
  25. NOBELBAR [Concomitant]
     Active Substance: PHENOBARBITAL SODIUM
     Dosage: 1000 MG, QD
     Dates: start: 20150914, end: 20150914
  26. ISODINE [Concomitant]
     Active Substance: POVIDONE-IODINE
     Dosage: UNK
     Dates: start: 20151009
  27. LAMICTAL [Suspect]
     Active Substance: LAMOTRIGINE
     Indication: EPILEPSY
     Dosage: 25 MG, QOD
     Route: 048
     Dates: start: 20150915, end: 20150929
  28. FLUMETHOLON [Suspect]
     Active Substance: FLUOROMETHOLONE
     Dosage: UNK, QID
     Route: 031
     Dates: start: 20151026
  29. KENALOG [Suspect]
     Active Substance: TRIAMCINOLONE ACETONIDE
     Dosage: UNK, BID
     Route: 049
     Dates: start: 20151026
  30. PREDONINE [Suspect]
     Active Substance: PREDNISOLONE\PREDNISOLONE ACETATE\PREDNISOLONE SODIUM SUCCINATE
     Dosage: UNK UNK, BID
     Route: 048
     Dates: start: 20151103, end: 20151113
  31. ZOLPIDEM TARTRATE. [Concomitant]
     Active Substance: ZOLPIDEM TARTRATE
     Dosage: 5 MG, QD
     Dates: start: 20151028, end: 20151028
  32. SENNARIDE [Concomitant]
     Active Substance: SENNOSIDES A AND B
     Dosage: 24 MG, QD
     Dates: start: 20150916, end: 20150916
  33. DEPAKENE [Suspect]
     Active Substance: VALPROIC ACID
     Indication: EPILEPSY
     Dosage: 600 MG, QD
     Route: 048
     Dates: start: 20150913, end: 20150914
  34. PREDONINE [Suspect]
     Active Substance: PREDNISOLONE\PREDNISOLONE ACETATE\PREDNISOLONE SODIUM SUCCINATE
     Dosage: 60 MG, QD
     Dates: start: 20151102, end: 20151102
  35. PREDONINE [Suspect]
     Active Substance: PREDNISOLONE\PREDNISOLONE ACETATE\PREDNISOLONE SODIUM SUCCINATE
     Dosage: UNK UNK, BID
     Dates: start: 20151114, end: 20151114
  36. SANBETASON [Suspect]
     Active Substance: DEXAMETHASONE
     Dosage: UNK, QID
     Route: 031
     Dates: start: 20151104
  37. SENNARIDE [Concomitant]
     Active Substance: SENNOSIDES A AND B
     Dosage: 24 MG, QD
     Dates: start: 20150926, end: 20150926
  38. CHINESE MEDICINE [Concomitant]
     Active Substance: UNSPECIFIED INGREDIENT
     Dosage: 2.5 G, TID
     Dates: start: 20150930, end: 20151026
  39. LAMICTAL [Suspect]
     Active Substance: LAMOTRIGINE
     Dosage: 25 MG, QD
     Route: 048
     Dates: start: 20150930, end: 20151015
  40. PREDONINE [Suspect]
     Active Substance: PREDNISOLONE\PREDNISOLONE ACETATE\PREDNISOLONE SODIUM SUCCINATE
     Dosage: 40 MG, 1D
     Route: 042
     Dates: start: 20151016, end: 20151016
  41. JZOLOFT [Concomitant]
     Active Substance: SERTRALINE HYDROCHLORIDE
     Dosage: 25 MG, QD
     Dates: start: 20150729, end: 20151026
  42. ZOLPIDEM TARTRATE. [Concomitant]
     Active Substance: ZOLPIDEM TARTRATE
     Dosage: 10 MG, QD
     Dates: start: 20150731

REACTIONS (20)
  - Pyrexia [Unknown]
  - Headache [Unknown]
  - Epidermal necrosis [Unknown]
  - Enanthema [Unknown]
  - Pneumocystis jirovecii pneumonia [Unknown]
  - Rash erythematous [Unknown]
  - Chest X-ray abnormal [Unknown]
  - Blister [Unknown]
  - Staphylococcal sepsis [Fatal]
  - Pain [Unknown]
  - Decreased appetite [Unknown]
  - Oral mucosal eruption [Unknown]
  - Disseminated intravascular coagulation [Unknown]
  - Stevens-Johnson syndrome [Fatal]
  - Lip swelling [Unknown]
  - Drug eruption [Unknown]
  - Rash generalised [Unknown]
  - Lymphadenopathy [Unknown]
  - Wheezing [Unknown]
  - Skin erosion [Unknown]

NARRATIVE: CASE EVENT DATE: 20151015
